FAERS Safety Report 17295904 (Version 1)
Quarter: 2020Q1

REPORT INFORMATION
  Report Type: Spontaneous
  Country: US (occurrence: US)
  Receive Date: 20200121
  Receipt Date: 20200121
  Transmission Date: 20200409
  Serious: Yes (Other)
  Sender: FDA-Public Use
  Company Number: US-PFIZER INC-2020026251

PATIENT
  Age: 84 Year
  Sex: Female
  Weight: 57.15 kg

DRUGS (1)
  1. PREMARIN [Suspect]
     Active Substance: ESTROGENS, CONJUGATED
     Indication: NIGHT SWEATS
     Dosage: GREEN LOW DOSE PILL

REACTIONS (3)
  - Hip fracture [Recovered/Resolved]
  - Product use in unapproved indication [Unknown]
  - Off label use [Unknown]

NARRATIVE: CASE EVENT DATE: 20181215
